FAERS Safety Report 21098698 (Version 1)
Quarter: 2022Q3

REPORT INFORMATION
  Report Type: Spontaneous
  Country: US (occurrence: US)
  Receive Date: 20220719
  Receipt Date: 20220719
  Transmission Date: 20221027
  Serious: Yes (Hospitalization)
  Sender: FDA-Public Use
  Company Number: US-ORG100016242-2022001846

PATIENT
  Sex: Female

DRUGS (2)
  1. EXPAREL [Suspect]
     Active Substance: BUPIVACAINE
     Indication: Transversus abdominis plane block
     Dosage: 20 ML ON EACH SIDE
  2. EXPAREL [Suspect]
     Active Substance: BUPIVACAINE
     Indication: Transversus abdominis plane block
     Dosage: FOLLOWING SURGERY AT THE PERIUMBILICAL PORT SITE

REACTIONS (2)
  - Hospitalisation [Unknown]
  - Prescribed overdose [Unknown]
